FAERS Safety Report 4545039-0 (Version None)
Quarter: 2005Q1

REPORT INFORMATION
  Report Type: 
  Country: None (occurrence: None)
  Receive Date: 20050104
  Receipt Date: 20041228
  Transmission Date: 20050727
  Serious: Yes (Hospitalization)
  Sender: FDA-Public Use
  Company Number: US-2004-026983

PATIENT
  Age: 57 Year
  Sex: Female

DRUGS (1)
  1. BETASERON [Suspect]
     Indication: RELAPSING-REMITTING MULTIPLE SCLEROSIS
     Dosage: 8MIU, EVERY 2D, SUBCUTANEOUS
     Route: 058
     Dates: start: 19940311

REACTIONS (1)
  - MYOCARDIAL INFARCTION [None]
